FAERS Safety Report 7804398-3 (Version None)
Quarter: 2011Q4

REPORT INFORMATION
  Report Type: 
  Country: None (occurrence: None)
  Receive Date: 20111010
  Receipt Date: 20110927
  Transmission Date: 20120403
  Serious: Yes (Hospitalization)
  Sender: FDA-Public Use
  Company Number: US-ELI_LILLY_AND_COMPANY-US201108000995

PATIENT
  Sex: Male

DRUGS (16)
  1. FORTEO [Suspect]
     Indication: OSTEOPOROSIS
     Dosage: 20 UG, QD
     Dates: start: 20110720
  2. VITAMIN B-12 [Concomitant]
  3. VITAMIN D [Concomitant]
     Dosage: 500 IU, UNKNOWN
  4. ANDROGEL [Concomitant]
  5. PRAVASTATIN [Concomitant]
  6. FOLIC ACID [Concomitant]
     Dosage: 1 MG, UNKNOWN
  7. PLAVIX [Concomitant]
  8. LASIX [Concomitant]
     Dosage: 20 MG, QD
  9. CALTRATE +D [Concomitant]
  10. FORTEO [Suspect]
     Dosage: 20 UG, QD
  11. ISOSORBIDE DINITRATE [Concomitant]
  12. ASPIRIN [Concomitant]
     Dosage: 81 MG, UNKNOWN
  13. ASCORBIC ACID [Concomitant]
     Dosage: 500 MG, UNKNOWN
  14. FLOMAX [Concomitant]
  15. SOMA [Concomitant]
  16. FERROUS SULFATE TAB [Concomitant]

REACTIONS (7)
  - ARTHRITIS [None]
  - PAIN [None]
  - SENSORY LOSS [None]
  - FALL [None]
  - PROCEDURAL PAIN [None]
  - NERVE COMPRESSION [None]
  - POST PROCEDURAL COMPLICATION [None]
